FAERS Safety Report 5071952-4 (Version None)
Quarter: 2006Q3

REPORT INFORMATION
  Report Type: 
  Country: None (occurrence: None)
  Receive Date: 20060804
  Receipt Date: 20060718
  Transmission Date: 20061208
  Serious: Yes (Other)
  Sender: FDA-Public Use
  Company Number: JP-ABBOTT-06P-087-0338238-00

PATIENT
  Age: 28 Year
  Sex: Female

DRUGS (12)
  1. VALPROATE SODIUM [Suspect]
     Indication: MYOCLONIC EPILEPSY
     Dosage: 1,200 MG/DAY
  2. VALPROATE SODIUM [Suspect]
     Dosage: 20 MG FOR THE PATIENT'S BODY WEIGHT
  3. VALPROATE SODIUM [Suspect]
     Dosage: INCREASED FOR TARGET BLOOD CONCENTRATION
  4. VALPROATE SODIUM [Suspect]
     Dosage: 1,800 MG/DAY
  5. VALPROATE SODIUM [Suspect]
     Dosage: 800 MG/DAY
  6. VALPROATE SODIUM [Suspect]
     Dosage: 1,000 MG/DAY
  7. VALPROATE SODIUM [Suspect]
     Dosage: 920 MG/DAY
  8. PHENOBARBITAL TAB [Concomitant]
     Indication: MYOCLONIC EPILEPSY
     Dosage: NOT REPORTED
  9. PHENOBARBITAL TAB [Concomitant]
     Dosage: REDUCED DOSE
  10. BENZODIAZEPINE DERIVATIVES [Concomitant]
     Indication: MYOCLONIC EPILEPSY
     Dosage: NOT REPORTED
  11. CLOBAZAM [Concomitant]
     Indication: CONVULSION
  12. MIDAZOLAM HYDROCHLORIDE [Concomitant]
     Indication: CONVULSION
     Route: 002

REACTIONS (2)
  - HEPATIC ADENOMA [None]
  - POLYCYSTIC OVARIES [None]
